FAERS Safety Report 25603107 (Version 1)
Quarter: 2025Q3

REPORT INFORMATION
  Report Type: Spontaneous
  Country: TR (occurrence: TR)
  Receive Date: 20250724
  Receipt Date: 20250724
  Transmission Date: 20251020
  Serious: Yes (Death, Hospitalization, Other)
  Sender: AZURITY PHARMACEUTICALS
  Company Number: TR-AZURITY PHARMACEUTICALS, INC.-AZR202506-002105

PATIENT
  Age: 58 Year
  Sex: Male

DRUGS (5)
  1. METHOTREXATE [Suspect]
     Active Substance: METHOTREXATE
     Indication: Central nervous system lymphoma
     Dosage: 3000 MG/M?, DAILY (STARTING DOSE)
     Route: 065
     Dates: start: 20240902
  2. METHOTREXATE [Suspect]
     Active Substance: METHOTREXATE
     Route: 037
     Dates: start: 20240930, end: 20241003
  3. CYTARABINE [Concomitant]
     Active Substance: CYTARABINE
     Indication: Central nervous system lymphoma
     Dosage: 1000 MG/M?, DAILY (STARTING DOSE)
     Route: 065
     Dates: start: 20240902
  4. CYTARABINE [Concomitant]
     Active Substance: CYTARABINE
     Route: 037
     Dates: start: 20240930, end: 20241003
  5. RITUXIMAB [Concomitant]
     Active Substance: RITUXIMAB
     Indication: Central nervous system lymphoma
     Dosage: 375 MG/M? (STARING DOSE), DAILY
     Route: 065
     Dates: start: 20240902

REACTIONS (4)
  - Multiple organ dysfunction syndrome [Fatal]
  - SJS-TEN overlap [Fatal]
  - Neutropenia [Unknown]
  - Diarrhoea [Unknown]

NARRATIVE: CASE EVENT DATE: 20240901
